FAERS Safety Report 13808295 (Version 1)
Quarter: 2017Q3

REPORT INFORMATION
  Report Type: Spontaneous
  Country: US (occurrence: US)
  Receive Date: 20170728
  Receipt Date: 20170728
  Transmission Date: 20171127
  Serious: Yes (Hospitalization, Other)
  Sender: FDA-Public Use
  Company Number: US-SAOL THERAPEUTICS-0700890593

PATIENT
  Age: 60 Year
  Sex: Female

DRUGS (6)
  1. LIORESAL [Suspect]
     Active Substance: BACLOFEN
     Indication: PAIN
     Dosage: 770 ?G, \DAY
     Route: 037
     Dates: start: 2015
  2. LIORESAL [Suspect]
     Active Substance: BACLOFEN
     Indication: PAIN
     Dosage: 50 ?G, \DAY
     Route: 037
     Dates: start: 201503, end: 2015
  3. LIORESAL [Suspect]
     Active Substance: BACLOFEN
     Indication: MUSCLE SPASTICITY
     Dosage: 100 ?G, \DAY
     Route: 037
     Dates: start: 201503, end: 20150318
  4. LIORESAL [Suspect]
     Active Substance: BACLOFEN
     Dosage: UNK
  5. LIORESAL [Suspect]
     Active Substance: BACLOFEN
     Dosage: 12.5 ?G, \DAY
     Dates: start: 20150318, end: 201503
  6. LIORESAL [Suspect]
     Active Substance: BACLOFEN
     Indication: MUSCLE SPASTICITY
     Dosage: 25 ?G, \DAY
     Dates: start: 201503, end: 201503

REACTIONS (26)
  - Vision blurred [Recovering/Resolving]
  - Overdose [Unknown]
  - Nausea [Not Recovered/Not Resolved]
  - Off label use [Unknown]
  - Drug intolerance [Unknown]
  - Complication associated with device [Unknown]
  - Extraocular muscle paresis [Not Recovered/Not Resolved]
  - Visual impairment [Not Recovered/Not Resolved]
  - Movement disorder [Unknown]
  - Bradycardia [Unknown]
  - Drug withdrawal syndrome [Unknown]
  - Toxicity to various agents [Unknown]
  - Fatigue [Unknown]
  - Headache [Unknown]
  - Vertigo [Unknown]
  - Incorrect route of drug administration [Recovered/Resolved]
  - Urinary incontinence [Not Recovered/Not Resolved]
  - Dizziness [Not Recovered/Not Resolved]
  - Dyspnoea [Unknown]
  - Therapeutic response decreased [Recovered/Resolved]
  - Complication of device removal [Unknown]
  - Incorrect dose administered [Unknown]
  - Gait disturbance [Not Recovered/Not Resolved]
  - Sexual dysfunction [Not Recovered/Not Resolved]
  - Hypotension [Unknown]
  - Urinary retention [Not Recovered/Not Resolved]

NARRATIVE: CASE EVENT DATE: 2015
